FAERS Safety Report 12941637 (Version 1)
Quarter: 2016Q4

REPORT INFORMATION
  Report Type: Spontaneous
  Country: US (occurrence: US)
  Receive Date: 20161115
  Receipt Date: 20161115
  Transmission Date: 20170207
  Serious: No
  Sender: FDA-Public Use
  Company Number: US-TEVA-711929USA

PATIENT
  Sex: Female

DRUGS (1)
  1. NICO 2 MG GUM ROM DUAN READ [Suspect]
     Active Substance: NICOTINE

REACTIONS (2)
  - Dizziness [Recovered/Resolved]
  - Gingival pain [Recovered/Resolved]
